FAERS Safety Report 4915299-2 (Version None)
Quarter: 2006Q1

REPORT INFORMATION
  Report Type: 
  Country: None (occurrence: None)
  Receive Date: 20060217
  Receipt Date: 20060214
  Transmission Date: 20060701
  Serious: Yes (Other)
  Sender: FDA-Public Use
  Company Number: US-GLAXOSMITHKLINE-A0593905A

PATIENT
  Age: 42 Year
  Sex: Male

DRUGS (2)
  1. EPZICOM [Suspect]
     Indication: HIV INFECTION
     Dosage: 1TAB PER DAY
     Route: 048
     Dates: start: 20060205, end: 20060215
  2. VIRAMUNE [Suspect]
     Indication: HIV INFECTION
     Dosage: 1TAB PER DAY
     Route: 048
     Dates: start: 20060205, end: 20060215

REACTIONS (6)
  - CHILLS [None]
  - DYSPNOEA [None]
  - LOCALISED OEDEMA [None]
  - MALAISE [None]
  - NAUSEA [None]
  - PYREXIA [None]
